FAERS Safety Report 21697503 (Version 2)
Quarter: 2022Q4

REPORT INFORMATION
  Report Type: Spontaneous
  Country: US (occurrence: US)
  Receive Date: 20221208
  Receipt Date: 20221209
  Transmission Date: 20230113
  Serious: No
  Sender: FDA-Public Use
  Company Number: US-002147023-NVSC2022US281249

PATIENT

DRUGS (1)
  1. COSENTYX [Suspect]
     Active Substance: SECUKINUMAB
     Indication: Product used for unknown indication
     Dosage: 300 MG, QD (STOP DATE:30 NOV 2022)
     Route: 065
     Dates: start: 20221026

REACTIONS (3)
  - Pain [Not Recovered/Not Resolved]
  - Headache [Unknown]
  - Hypertension [Unknown]
